FAERS Safety Report 23340837 (Version 1)
Quarter: 2023Q4

REPORT INFORMATION
  Report Type: Spontaneous
  Country: GB (occurrence: GB)
  Receive Date: 20231227
  Receipt Date: 20231227
  Transmission Date: 20240110
  Serious: Yes (Life-Threatening)
  Sender: FDA-Public Use
  Company Number: None

PATIENT

DRUGS (3)
  1. ATRACURIUM [Suspect]
     Active Substance: ATRACURIUM
     Indication: Induction of anaesthesia
     Dosage: 40 MILLIGRAM
     Route: 065
     Dates: start: 20231211, end: 20231211
  2. FENTANYL [Concomitant]
     Active Substance: FENTANYL\FENTANYL CITRATE
     Indication: Product used for unknown indication
     Dosage: UNK
     Route: 065
  3. PROPOFOL [Concomitant]
     Active Substance: PROPOFOL
     Indication: Anaesthesia
     Dosage: UNK
     Route: 065
     Dates: start: 20231211, end: 20231211

REACTIONS (4)
  - Bronchospasm [Recovered/Resolved]
  - Supraventricular tachycardia [Recovered/Resolved]
  - Hypoventilation [Unknown]
  - Oxygen saturation decreased [Unknown]

NARRATIVE: CASE EVENT DATE: 20231211
